FAERS Safety Report 24291304 (Version 1)
Quarter: 2024Q3

REPORT INFORMATION
  Report Type: Spontaneous
  Country: US (occurrence: None)
  Receive Date: 20240906
  Receipt Date: 20240906
  Transmission Date: 20241016
  Serious: No
  Sender: DOMPE FARMACEUTICI
  Company Number: US-FARMAPROD-202308-2440

PATIENT
  Sex: Female

DRUGS (6)
  1. OXERVATE [Suspect]
     Active Substance: CENEGERMIN-BKBJ
     Indication: Neurotrophic keratopathy
     Route: 047
     Dates: start: 20230717
  2. MIRTAZAPINE [Concomitant]
     Active Substance: MIRTAZAPINE
  3. ACYCLOVIR [Concomitant]
     Active Substance: ACYCLOVIR
  4. NIFEDIPINE [Concomitant]
     Active Substance: NIFEDIPINE
  5. RESTASIS [Concomitant]
     Active Substance: CYCLOSPORINE
  6. Optase Hylo Night [Concomitant]
     Indication: Dry eye

REACTIONS (1)
  - Product administration error [Unknown]
